FAERS Safety Report 7971692 (Version 2)
Quarter: 2018Q3

REPORT INFORMATION
  Report Type: Report from Study
  Country: AU (occurrence: AU)
  Receive Date: 20110601
  Receipt Date: 20180827
  Transmission Date: 20181010
  Serious: Yes (Death)
  Sender: FDA-Public Use
  Company Number: AU-PFIZER INC-2011117006

PATIENT
  Age: 24 Year
  Sex: Male

DRUGS (5)
  1. METHYLENEDIOXYMETHAMPHETAMINE [Interacting]
     Active Substance: MIDOMAFETAMINE
     Dosage: UNK
  2. METHADONE [Suspect]
     Active Substance: METHADONE HYDROCHLORIDE
     Dosage: UNK
  3. METHAMPHETAMINE [Interacting]
     Active Substance: METHAMPHETAMINE
     Dosage: UNK
  4. OXAZEPAM. [Suspect]
     Active Substance: OXAZEPAM
     Dosage: UNK
  5. ALPRAZOLAM. [Suspect]
     Active Substance: ALPRAZOLAM
     Dosage: UNK

REACTIONS (2)
  - Drug interaction [Fatal]
  - Toxicity to various agents [Fatal]
